FAERS Safety Report 5160819-9 (Version None)
Quarter: 2006Q4

REPORT INFORMATION
  Report Type: 
  Country: None (occurrence: None)
  Receive Date: 20061121
  Receipt Date: 20061108
  Transmission Date: 20070319
  Serious: Yes (Other)
  Sender: FDA-Public Use
  Company Number: 2006US002541

PATIENT
  Age: 46 Year
  Sex: Male

DRUGS (6)
  1. ADENOSCAN [Suspect]
     Indication: SCAN MYOCARDIAL PERFUSION
     Dosage: 140 RK/MIN, TOTAL DOSE, IV NOS
     Route: 042
     Dates: start: 20060821, end: 20060821
  2. VENLAFAXINE HCL [Suspect]
     Indication: DRUG USE FOR UNKNOWN INDICATION
     Dosage: 75 MG, ORAL
     Route: 048
     Dates: start: 20051201
  3. IBUPROFEN [Concomitant]
  4. INDOMETHACIN [Concomitant]
  5. PANTOPRAZOLE SODIUM [Concomitant]
  6. ACETAMINOPHEN [Concomitant]

REACTIONS (2)
  - CARDIAC ARREST [None]
  - DRUG INTERACTION [None]
